FAERS Safety Report 15748615 (Version 3)
Quarter: 2022Q2

REPORT INFORMATION
  Report Type: Report from Study
  Country: CA (occurrence: None)
  Receive Date: 20181221
  Receipt Date: 20220629
  Transmission Date: 20220721
  Serious: Yes (Hospitalization)
  Sender: FDA-Public Use
  Company Number: CA-ROCHE-2232584

PATIENT
  Age: 55 Year
  Sex: Male

DRUGS (28)
  1. RITUXIMAB [Suspect]
     Active Substance: RITUXIMAB
     Indication: Haematological malignancy
     Route: 042
     Dates: start: 20181129, end: 20181129
  2. CYCLOPHOSPHAMIDE [Suspect]
     Active Substance: CYCLOPHOSPHAMIDE
     Indication: Haematological malignancy
     Route: 042
     Dates: start: 20181130, end: 20181202
  3. ETOPOSIDE [Suspect]
     Active Substance: ETOPOSIDE
     Indication: Haematological malignancy
     Route: 042
     Dates: start: 20181130, end: 20181202
  4. CISPLATIN [Suspect]
     Active Substance: CISPLATIN
     Indication: Haematological malignancy
     Route: 042
     Dates: start: 20181130, end: 20181202
  5. ULORIC [Concomitant]
     Active Substance: FEBUXOSTAT
     Dates: start: 2008
  6. PERINDOPRIL [Concomitant]
     Active Substance: PERINDOPRIL
     Dates: start: 2008
  7. INDAPAMIDE [Concomitant]
     Active Substance: INDAPAMIDE
     Dates: start: 2008
  8. ROSUVASTATIN [Concomitant]
     Active Substance: ROSUVASTATIN
     Dates: start: 2008
  9. FELODIPINE [Concomitant]
     Active Substance: FELODIPINE
     Dates: start: 2008
  10. LAMIVUDINE [Concomitant]
     Active Substance: LAMIVUDINE
     Dates: start: 20181128
  11. FERROUS FUMARATE [Concomitant]
     Active Substance: FERROUS FUMARATE
     Dates: start: 20181128
  12. BENADRYL [Concomitant]
     Active Substance: DIPHENHYDRAMINE HYDROCHLORIDE
     Dates: start: 20181129
  13. BENADRYL [Concomitant]
     Active Substance: DIPHENHYDRAMINE HYDROCHLORIDE
     Dates: start: 20181203
  14. TYLENOL [Concomitant]
     Active Substance: ACETAMINOPHEN
     Dates: start: 20181129
  15. TYLENOL [Concomitant]
     Active Substance: ACETAMINOPHEN
     Dates: start: 20181203
  16. SODIUM CHLORIDE [Concomitant]
     Active Substance: SODIUM CHLORIDE
     Dates: start: 20181129, end: 20181201
  17. SODIUM CHLORIDE [Concomitant]
     Active Substance: SODIUM CHLORIDE
     Dates: start: 20181203
  18. DEXTROSE [Concomitant]
     Active Substance: DEXTROSE
     Dates: start: 20181130, end: 20181203
  19. APREPITANT [Concomitant]
     Active Substance: APREPITANT
     Dates: start: 20181130, end: 20181202
  20. FUROSEMIDE [Concomitant]
     Active Substance: FUROSEMIDE
     Dates: start: 20181130, end: 20181202
  21. MESNA [Concomitant]
     Active Substance: MESNA
     Dates: start: 20181130, end: 20181202
  22. PANTOPRAZOLE [Concomitant]
     Active Substance: PANTOPRAZOLE
     Dates: start: 20181211
  23. FILGRASTIM [Concomitant]
     Active Substance: FILGRASTIM
     Dates: start: 20181211
  24. PANTOPRAZOLE SODIUM [Concomitant]
     Active Substance: PANTOPRAZOLE SODIUM
     Dates: start: 20181212
  25. ACYCLOVIR [Concomitant]
     Active Substance: ACYCLOVIR
     Dates: start: 20181206
  26. LEVOFLOXACIN [Concomitant]
     Active Substance: LEVOFLOXACIN
     Dates: start: 20181207
  27. SULFAMETHOXAZOLE\TRIMETHOPRIM [Concomitant]
     Active Substance: SULFAMETHOXAZOLE\TRIMETHOPRIM
     Dates: start: 201812
  28. DIPHENHYDRAMINE HYDROCHLORIDE\LIDOCAINE HYDROCHLORIDE\NYSTATIN [Concomitant]
     Active Substance: DIPHENHYDRAMINE HYDROCHLORIDE\LIDOCAINE HYDROCHLORIDE\NYSTATIN
     Dates: start: 20181211

REACTIONS (2)
  - Lower gastrointestinal haemorrhage [Recovered/Resolved]
  - Febrile neutropenia [Unknown]

NARRATIVE: CASE EVENT DATE: 20181212
